FAERS Safety Report 11703890 (Version 1)
Quarter: 2015Q4

REPORT INFORMATION
  Report Type: Spontaneous
  Country: None (occurrence: None)
  Receive Date: 20151105
  Receipt Date: 20151105
  Transmission Date: 20160304
  Serious: Yes (Hospitalization)
  Sender: FDA-Public Use
  Company Number: None

PATIENT
  Age: 65 Year
  Sex: Male
  Weight: 72.58 kg

DRUGS (1)
  1. ALPHA LIPOIC ACID IV INFUSION [Suspect]
     Active Substance: .ALPHA.-LIPOIC ACID
     Indication: NEUROPATHY PERIPHERAL

REACTIONS (2)
  - Ecchymosis [None]
  - Immune thrombocytopenic purpura [None]

NARRATIVE: CASE EVENT DATE: 20151008
